FAERS Safety Report 6520865-7 (Version None)
Quarter: 2009Q4

REPORT INFORMATION
  Report Type: 
  Country: None (occurrence: None)
  Receive Date: 20091229
  Receipt Date: 20091223
  Transmission Date: 20100525
  Serious: Yes (Hospitalization)
  Sender: FDA-Public Use
  Company Number: US-ELI_LILLY_AND_COMPANY-US200911005727

PATIENT
  Age: 65 Year
  Sex: Male
  Weight: 129.71 kg

DRUGS (4)
  1. EFFIENT [Suspect]
     Indication: PERCUTANEOUS CORONARY INTERVENTION
     Dosage: 60 MG, UNK
     Dates: start: 20091101
  2. EFFIENT [Suspect]
     Dosage: 10 MG, DAILY (1/D)
  3. PLAVIX [Concomitant]
     Dates: start: 20091101, end: 20091101
  4. ASPIRIN [Concomitant]
     Dosage: 325 MG, DAILY (1/D)

REACTIONS (1)
  - THROMBOSIS IN DEVICE [None]
